FAERS Safety Report 8674863 (Version 5)
Quarter: 2012Q4

REPORT INFORMATION
  Report Type: 
  Country: US (occurrence: US)
  Receive Date: 20120720
  Receipt Date: 20121029
  Transmission Date: 20130627
  Serious: Yes (Hospitalization, Other)
  Sender: FDA-Public Use
  Company Number: US-JNJFOC-20120607388

PATIENT
  Age: 72 None
  Sex: Male

DRUGS (7)
  1. REMICADE [Suspect]
     Indication: PSORIATIC ARTHROPATHY
     Route: 042
     Dates: end: 20120319
  2. REMICADE [Suspect]
     Indication: PSORIATIC ARTHROPATHY
     Route: 042
     Dates: start: 20070305
  3. REMICADE [Suspect]
     Indication: PSORIATIC ARTHROPATHY
     Route: 042
     Dates: start: 20120409
  4. FISH OIL [Concomitant]
     Route: 048
  5. PRILOSEC [Concomitant]
     Indication: GASTROOESOPHAGEAL REFLUX DISEASE
     Route: 048
  6. SIMVASTATIN [Concomitant]
     Indication: BLOOD CHOLESTEROL
     Dosage: 10 (units unspecified)
     Route: 048
  7. MULTIVITAMINS [Concomitant]
     Route: 065

REACTIONS (6)
  - Cellulitis [Recovering/Resolving]
  - Staphylococcal infection [Recovered/Resolved]
  - Staphylococcal infection [Recovering/Resolving]
  - Drug effect decreased [Not Recovered/Not Resolved]
  - Abscess limb [Recovered/Resolved]
  - Diabetic foot [Recovering/Resolving]
